FAERS Safety Report 15189460 (Version 1)
Quarter: 2018Q3

REPORT INFORMATION
  Report Type: Spontaneous
  Country: US (occurrence: US)
  Receive Date: 20180625
  Receipt Date: 20180625
  Transmission Date: 20181010
  Serious: Yes (Hospitalization, Other)
  Sender: FDA-Public Use
  Company Number: None

PATIENT
  Age: 64 Year
  Sex: Male
  Weight: 101.25 kg

DRUGS (14)
  1. ALLOPURINOL. [Concomitant]
     Active Substance: ALLOPURINOL
  2. LOSARTAN. [Concomitant]
     Active Substance: LOSARTAN
  3. TURMERIC [Concomitant]
     Active Substance: HERBALS\TURMERIC
  4. GINGER. [Concomitant]
     Active Substance: GINGER
  5. CLENPIQ [Suspect]
     Active Substance: ANHYDROUS CITRIC ACID\MAGNESIUM OXIDE\SODIUM PICOSULFATE
     Indication: COLONOSCOPY
     Dosage: ?          QUANTITY:2 BOTTLES;?
     Route: 048
     Dates: start: 20180619, end: 20180619
  6. CAYENNE [Concomitant]
  7. LYCOPENE [Concomitant]
     Active Substance: LYCOPENE
  8. COENZYME Q10 [Concomitant]
     Active Substance: UBIDECARENONE
  9. VITAMIN D [Concomitant]
     Active Substance: CHOLECALCIFEROL
  10. GARLIC. [Concomitant]
     Active Substance: GARLIC
  11. RESVERATROL [Concomitant]
     Active Substance: DIETARY SUPPLEMENT\RESVERATROL
  12. FISH OIL [Concomitant]
     Active Substance: FISH OIL
  13. ASPIRIN. [Concomitant]
     Active Substance: ASPIRIN
  14. LIPITOR [Concomitant]
     Active Substance: ATORVASTATIN CALCIUM

REACTIONS (3)
  - Hypertension [None]
  - Atrial fibrillation [None]
  - Dehydration [None]

NARRATIVE: CASE EVENT DATE: 20180620
